FAERS Safety Report 20264235 (Version 1)
Quarter: 2021Q4

REPORT INFORMATION
  Report Type: Spontaneous
  Country: PL (occurrence: PL)
  Receive Date: 20211231
  Receipt Date: 20211231
  Transmission Date: 20220303
  Serious: Yes (Other)
  Sender: FDA-Public Use
  Company Number: PL-GILEAD-2021-0557742

PATIENT
  Sex: Male
  Weight: 113 kg

DRUGS (2)
  1. RIBAVIRIN [Suspect]
     Active Substance: RIBAVIRIN
     Indication: Chronic hepatitis C
     Dosage: UNK
     Route: 065
     Dates: start: 20160425, end: 20161013
  2. SOVALDI [Suspect]
     Active Substance: SOFOSBUVIR
     Indication: Chronic hepatitis C
     Dosage: 400 MG
     Route: 048
     Dates: start: 20160425, end: 20161013

REACTIONS (1)
  - Drug ineffective [Not Recovered/Not Resolved]

NARRATIVE: CASE EVENT DATE: 20160101
